FAERS Safety Report 13067359 (Version 1)
Quarter: 2016Q4

REPORT INFORMATION
  Report Type: Spontaneous
  Country: KR (occurrence: KR)
  Receive Date: 20161228
  Receipt Date: 20161228
  Transmission Date: 20170207
  Serious: Yes (Hospitalization, Other)
  Sender: FDA-Public Use
  Company Number: KR-BRISTOL-MYERS SQUIBB COMPANY-BMS-2016-105160

PATIENT
  Age: 58 Year
  Sex: Female

DRUGS (22)
  1. VITAMIN D3 [Concomitant]
     Active Substance: CHOLECALCIFEROL
     Indication: SPINAL COMPRESSION FRACTURE
     Dosage: 1 DF, UNK
     Route: 030
     Dates: start: 20161127, end: 20161127
  2. MEDILAC DS [Concomitant]
     Indication: SPINAL COMPRESSION FRACTURE
     Dosage: 1 DF, UNK
     Route: 048
     Dates: start: 20161130
  3. CHIROCAINE [Concomitant]
     Active Substance: LEVOBUPIVACAINE HYDROCHLORIDE
     Indication: SPINAL COMPRESSION FRACTURE
     Dosage: 1 DF, UNK
     Route: 050
     Dates: start: 20161128, end: 20161128
  4. TAMCETON [Concomitant]
     Indication: SPINAL COMPRESSION FRACTURE
     Dosage: 1 DF, UNK
     Route: 050
     Dates: start: 20161128, end: 20161128
  5. LYRICA [Concomitant]
     Active Substance: PREGABALIN
     Indication: SPINAL COMPRESSION FRACTURE
     Dosage: 1 DF, UNK
     Route: 048
     Dates: start: 20161130
  6. CELEBREX [Concomitant]
     Active Substance: CELECOXIB
     Indication: SPINAL COMPRESSION FRACTURE
     Dosage: 1 DF, UNK
     Route: 048
     Dates: start: 20161130
  7. DACLATASVIR DIHYDROCHLORIDE [Suspect]
     Active Substance: DACLATASVIR DIHYDROCHLORIDE
     Indication: CHRONIC HEPATITIS C
     Dosage: 60 MG, QD
     Route: 065
     Dates: start: 20160215, end: 20160731
  8. ASUNAPREVIR [Suspect]
     Active Substance: ASUNAPREVIR
     Indication: CHRONIC HEPATITIS C
     Dosage: 100 MG, BID
     Route: 065
     Dates: start: 20160215, end: 20160731
  9. ITOPRIDE                           /01527102/ [Concomitant]
     Indication: ABDOMINAL PAIN UPPER
     Dosage: 2 TAB, UNK
     Route: 048
     Dates: start: 20160411, end: 20160526
  10. TRAMADOL                           /00599202/ [Concomitant]
     Active Substance: TRAMADOL
     Indication: SPINAL COMPRESSION FRACTURE
     Dosage: 1 DF, UNK
     Route: 030
     Dates: start: 20161127, end: 20161127
  11. FORSTEO [Concomitant]
     Active Substance: TERIPARATIDE
     Indication: SPINAL COMPRESSION FRACTURE
     Dosage: 1 DF, UNK
     Route: 058
     Dates: start: 20161129, end: 20161201
  12. MECKOOL [Concomitant]
     Indication: NAUSEA
     Dosage: 1 DF, UNK
     Route: 042
     Dates: start: 20161130, end: 20161130
  13. STIMOL                             /00637601/ [Concomitant]
     Indication: SPINAL COMPRESSION FRACTURE
     Dosage: 1 DF, UNK
     Route: 048
     Dates: start: 20161130, end: 20161201
  14. METHOCARBAMOL. [Concomitant]
     Active Substance: METHOCARBAMOL
     Indication: SPINAL COMPRESSION FRACTURE
     Dosage: 1 DF, UNK
     Route: 042
     Dates: start: 20161127, end: 20161129
  15. NORSPAN [Concomitant]
     Active Substance: BUPRENORPHINE
     Indication: SPINAL COMPRESSION FRACTURE
     Dosage: 1 DF, UNK
     Route: 050
     Dates: start: 20161127, end: 20161203
  16. CURAN [Concomitant]
     Active Substance: RANITIDINE HYDROCHLORIDE
     Indication: ABDOMINAL PAIN UPPER
     Dosage: 2 TAB, UNK
     Route: 048
     Dates: start: 20160411, end: 20160526
  17. DEPAS [Concomitant]
     Active Substance: ETIZOLAM
     Indication: CHEST DISCOMFORT
     Dosage: 2 TAB, UNK
     Route: 048
     Dates: start: 20160411, end: 20160526
  18. ALMAGEL                            /00082501/ [Concomitant]
     Indication: ABDOMINAL PAIN UPPER
     Dosage: 2 TAB, UNK
     Route: 048
     Dates: start: 20160411, end: 20160526
  19. NORMAL SALINE [Concomitant]
     Active Substance: SODIUM CHLORIDE
     Indication: SPINAL COMPRESSION FRACTURE
     Dosage: 1 DF, UNK
     Route: 042
     Dates: start: 20161127, end: 20161129
  20. LIDOCAINE HCL [Concomitant]
     Active Substance: LIDOCAINE HYDROCHLORIDE
     Indication: SPINAL COMPRESSION FRACTURE
     Dosage: 10 ML, UNK
     Route: 050
     Dates: start: 20161128, end: 20161128
  21. MULEX [Concomitant]
     Indication: SPINAL COMPRESSION FRACTURE
     Dosage: 2 TAB, UNK
     Route: 048
     Dates: start: 20161130
  22. ESOMEZOL                           /01479302/ [Concomitant]
     Indication: SPINAL COMPRESSION FRACTURE
     Dosage: 1 TAB, UNK
     Route: 048
     Dates: start: 20161130

REACTIONS (10)
  - Spinal compression fracture [Recovered/Resolved]
  - Pain [Recovered/Resolved]
  - Nausea [Recovered/Resolved]
  - Alanine aminotransferase increased [Recovered/Resolved]
  - Asthenia [Recovered/Resolved]
  - Abdominal pain upper [Recovered/Resolved]
  - Nerve block [Recovering/Resolving]
  - Vertigo [Recovered/Resolved]
  - Chest discomfort [Recovered/Resolved]
  - Aspartate aminotransferase increased [Recovered/Resolved]

NARRATIVE: CASE EVENT DATE: 20160218
